FAERS Safety Report 16955198 (Version 1)
Quarter: 2019Q4

REPORT INFORMATION
  Report Type: Spontaneous
  Country: PT (occurrence: PT)
  Receive Date: 20191024
  Receipt Date: 20191024
  Transmission Date: 20200122
  Serious: Yes (Other)
  Sender: FDA-Public Use
  Company Number: PT-TEVA-2019-PT-1125344

PATIENT
  Age: 32 Year
  Sex: Male

DRUGS (6)
  1. LORAZEPAM. [Concomitant]
     Active Substance: LORAZEPAM
     Route: 065
  2. CLOZAPINE TABLETS, 12.5MG, 25MG, 50 MG 100MG [Suspect]
     Active Substance: CLOZAPINE
     Route: 065
  3. OMEPRAZOLE. [Concomitant]
     Active Substance: OMEPRAZOLE
     Route: 065
  4. CHOROPROMAZINE [Suspect]
     Active Substance: CHLORPROMAZINE
     Route: 065
  5. HALOPERIDOL. [Suspect]
     Active Substance: HALOPERIDOL
     Route: 065
  6. BIPERIDEN [Suspect]
     Active Substance: BIPERIDEN
     Route: 065

REACTIONS (1)
  - Colitis ischaemic [Recovered/Resolved]
